FAERS Safety Report 6387331-3 (Version None)
Quarter: 2009Q3

REPORT INFORMATION
  Report Type: 
  Country: None (occurrence: None)
  Receive Date: 20090930
  Receipt Date: 20090914
  Transmission Date: 20100115
  Serious: Yes (Hospitalization, Other)
  Sender: FDA-Public Use
  Company Number: 2009AL002791

PATIENT
  Age: 53 Year
  Sex: Female

DRUGS (14)
  1. DIGOXIN [Suspect]
     Dosage: 0.125MG, DAILY, PO
     Route: 048
     Dates: start: 20040501
  2. LEVAQUIN [Concomitant]
  3. METOPROLOL [Concomitant]
  4. LASIX [Concomitant]
  5. SIMVASTATIN [Concomitant]
  6. MONOPRIL [Concomitant]
  7. FERROUS SULFATE TAB [Concomitant]
  8. SYNTHROID [Concomitant]
  9. HYZAAR [Concomitant]
  10. CLONIDINE [Concomitant]
  11. GEMFIBROZIL [Concomitant]
  12. AVANDIA [Concomitant]
  13. DYNACIRIC [Concomitant]
  14. LANTUS [Concomitant]

REACTIONS (6)
  - ECONOMIC PROBLEM [None]
  - IRON DEFICIENCY ANAEMIA [None]
  - LOBAR PNEUMONIA [None]
  - MULTIPLE INJURIES [None]
  - OCCULT BLOOD POSITIVE [None]
  - SURGERY [None]
